FAERS Safety Report 19353066 (Version 1)
Quarter: 2021Q2

REPORT INFORMATION
  Report Type: Report from Study
  Country: TH (occurrence: TH)
  Receive Date: 20210531
  Receipt Date: 20210531
  Transmission Date: 20210717
  Serious: Yes (Other)
  Sender: FDA-Public Use
  Company Number: NVSC2021TH108359

PATIENT
  Age: 58 Year
  Sex: Female
  Weight: 77 kg

DRUGS (5)
  1. KISQALI [Suspect]
     Active Substance: RIBOCICLIB
     Indication: BREAST CANCER METASTATIC
     Dosage: 200 MG, TID
     Route: 048
     Dates: start: 20200715
  2. MTV [Concomitant]
     Indication: PRODUCT USED FOR UNKNOWN INDICATION
     Route: 065
  3. FLUOXETINE [Concomitant]
     Active Substance: FLUOXETINE HYDROCHLORIDE
     Indication: PRODUCT USED FOR UNKNOWN INDICATION
     Dosage: 20 MG, QD (1 TAB ONCE DAILY PC MORNING
     Route: 065
  4. LORAZEPAM. [Concomitant]
     Active Substance: LORAZEPAM
     Indication: PRODUCT USED FOR UNKNOWN INDICATION
     Dosage: 1 MG, QD (1 TAB PRN ONCE DAILY HS)
     Route: 065
  5. LETROZOLE. [Suspect]
     Active Substance: LETROZOLE
     Indication: PRODUCT USED FOR UNKNOWN INDICATION
     Dosage: 2.5 MG, QD
     Route: 048
     Dates: start: 20200715

REACTIONS (19)
  - Basophil count increased [Unknown]
  - Glomerular filtration rate decreased [Unknown]
  - Polychromasia [Unknown]
  - Hepatic function abnormal [Unknown]
  - Blood potassium decreased [Unknown]
  - Anisocytosis [Unknown]
  - Electrocardiogram QT interval abnormal [Unknown]
  - Monocyte count increased [Unknown]
  - Pulmonary mass [Unknown]
  - Blood pressure diastolic decreased [Unknown]
  - Carcinoembryonic antigen increased [Unknown]
  - Lymphocyte count increased [Unknown]
  - Globulins increased [Unknown]
  - Red blood cell morphology abnormal [Unknown]
  - Neutrophil count decreased [Unknown]
  - Red cell distribution width increased [Unknown]
  - Macrocytosis [Unknown]
  - Poikilocytosis [Unknown]
  - White blood cell count decreased [Unknown]

NARRATIVE: CASE EVENT DATE: 20200819
